FAERS Safety Report 21218521 (Version 1)
Quarter: 2022Q3

REPORT INFORMATION
  Report Type: Spontaneous
  Country: US (occurrence: None)
  Receive Date: 20220816
  Receipt Date: 20220816
  Transmission Date: 20221027
  Serious: Yes (Hospitalization)
  Sender: FDA-Public Use
  Company Number: None

PATIENT
  Sex: Female

DRUGS (1)
  1. TETRABENAZINE [Suspect]
     Active Substance: TETRABENAZINE
     Indication: Huntington^s disease
     Dosage: 100 MG THREE TIMES A DAY ORAL
     Route: 048
     Dates: start: 202202

REACTIONS (3)
  - Product dispensing error [None]
  - Insurance issue [None]
  - Product use issue [None]
